FAERS Safety Report 18192198 (Version 1)
Quarter: 2020Q3

REPORT INFORMATION
  Report Type: Spontaneous
  Country: US (occurrence: US)
  Receive Date: 20200825
  Receipt Date: 20200825
  Transmission Date: 20201103
  Serious: No
  Sender: FDA-Public Use
  Company Number: US-PFIZER INC-2020324841

PATIENT
  Age: 26 Year
  Sex: Female
  Weight: 120 kg

DRUGS (1)
  1. BOSULIF [Suspect]
     Active Substance: BOSUTINIB MONOHYDRATE
     Indication: CHRONIC MYELOID LEUKAEMIA
     Dosage: 400 MG, DAILY
     Route: 048
     Dates: start: 20150730

REACTIONS (3)
  - Fatigue [Unknown]
  - Gastrointestinal disorder [Unknown]
  - Intentional dose omission [Unknown]
